FAERS Safety Report 15983005 (Version 1)
Quarter: 2019Q1

REPORT INFORMATION
  Report Type: Spontaneous
  Country: US (occurrence: US)
  Receive Date: 20190219
  Receipt Date: 20190219
  Transmission Date: 20190418
  Serious: Yes (Hospitalization)
  Sender: FDA-Public Use
  Company Number: US-ALLERGAN-1906954US

PATIENT
  Age: 97 Year
  Sex: Female

DRUGS (11)
  1. HYDROCHLOROTHIAZIDE. [Suspect]
     Active Substance: HYDROCHLOROTHIAZIDE
     Indication: PRODUCT USED FOR UNKNOWN INDICATION
     Dosage: 25 MG, QD
  2. TEMAZEPAM. [Suspect]
     Active Substance: TEMAZEPAM
     Indication: PRODUCT USED FOR UNKNOWN INDICATION
     Dosage: 7.5 MG, QD
  3. ENALAPRIL [Concomitant]
     Active Substance: ENALAPRIL
  4. ROPINIROLE. [Suspect]
     Active Substance: ROPINIROLE
     Indication: PRODUCT USED FOR UNKNOWN INDICATION
     Dosage: 0.25 MG, QPM
  5. CLONIDINE. [Suspect]
     Active Substance: CLONIDINE
     Indication: PRODUCT USED FOR UNKNOWN INDICATION
     Dosage: UNK UNK, BID
  6. SIMVASTATIN. [Concomitant]
     Active Substance: SIMVASTATIN
     Dosage: UNK
     Dates: start: 2018
  7. LUMIGAN [Suspect]
     Active Substance: BIMATOPROST
     Indication: PRODUCT USED FOR UNKNOWN INDICATION
     Dosage: UNK UNK, QPM
     Route: 047
  8. REVATIO [Suspect]
     Active Substance: SILDENAFIL CITRATE
     Indication: DYSPNOEA
     Dosage: 20 MG, TID
     Dates: start: 2009
  9. LABETALOL [Concomitant]
     Active Substance: LABETALOL\LABETALOL HYDROCHLORIDE
     Dosage: UNK
  10. PREDNISOLONE UNK [Suspect]
     Active Substance: PREDNISOLONE
     Indication: CORNEAL DISORDER
     Dosage: 1 GTT, QAM
     Route: 047
  11. AMLODIPINE [Suspect]
     Active Substance: AMLODIPINE BESYLATE
     Indication: PRODUCT USED FOR UNKNOWN INDICATION
     Dosage: 5 MG, QD

REACTIONS (9)
  - Gastrointestinal infection [Not Recovered/Not Resolved]
  - Dyspnoea [Not Recovered/Not Resolved]
  - Clavicle fracture [Unknown]
  - Intestinal obstruction [Not Recovered/Not Resolved]
  - Corneal disorder [Not Recovered/Not Resolved]
  - Fall [Unknown]
  - Upper limb fracture [Unknown]
  - Pain in extremity [Not Recovered/Not Resolved]
  - Visual impairment [Not Recovered/Not Resolved]

NARRATIVE: CASE EVENT DATE: 2016
